FAERS Safety Report 18158552 (Version 1)
Quarter: 2020Q3

REPORT INFORMATION
  Report Type: Spontaneous
  Country: DE (occurrence: DE)
  Receive Date: 20200817
  Receipt Date: 20200817
  Transmission Date: 20201103
  Serious: Yes (Hospitalization)
  Sender: FDA-Public Use
  Company Number: DE-JNJFOC-20200808183

PATIENT
  Age: 56 Year
  Sex: Male
  Weight: 112 kg

DRUGS (11)
  1. LEVOTHYROXINENATRIUM TEVA [Concomitant]
     Dosage: 75
  2. DUROGESIC [Suspect]
     Active Substance: FENTANYL
     Indication: PRODUCT USED FOR UNKNOWN INDICATION
     Route: 065
  3. TORASEMID [Concomitant]
     Active Substance: TORSEMIDE
     Dosage: 50 MG, 1?0?0?0
  4. HYDROMORPHON [Concomitant]
     Active Substance: HYDROMORPHONE
  5. LACTULOSE. [Concomitant]
     Active Substance: LACTULOSE
  6. PANTOPRAZOL [Concomitant]
     Active Substance: PANTOPRAZOLE SODIUM
  7. SPIRONOLACTONE. [Concomitant]
     Active Substance: SPIRONOLACTONE
  8. HYDROMORPHON [Concomitant]
     Active Substance: HYDROMORPHONE
  9. MCP [Concomitant]
     Active Substance: METOCLOPRAMIDE HYDROCHLORIDE
  10. RIFAXIMIN. [Concomitant]
     Active Substance: RIFAXIMIN
  11. METAMIZOL                          /06276702/ [Concomitant]
     Active Substance: METAMIZOLE
     Dosage: 1 G, 4X

REACTIONS (5)
  - Abdominal pain [Unknown]
  - Sciatica [Unknown]
  - Condition aggravated [Unknown]
  - Product prescribing error [Unknown]
  - Abdominal pain upper [Unknown]
